FAERS Safety Report 6243667-8 (Version None)
Quarter: 2009Q2

REPORT INFORMATION
  Report Type: 
  Country: None (occurrence: None)
  Receive Date: 20090618
  Receipt Date: 20090113
  Transmission Date: 20091009
  Serious: Yes (Other)
  Sender: FDA-Public Use
  Company Number: CIP09000073

PATIENT
  Age: 71 Year
  Sex: Female

DRUGS (1)
  1. ACTONEL [Suspect]
     Indication: OSTEOPOROSIS
     Dosage: UNKNOWN DOSAGE/REGIMEN, ORAL
     Route: 048

REACTIONS (5)
  - DRUG INEFFECTIVE [None]
  - FRACTURED SACRUM [None]
  - IMPAIRED WORK ABILITY [None]
  - OSTEOPOROTIC FRACTURE [None]
  - WALKING DISABILITY [None]
